FAERS Safety Report 6176503-9 (Version None)
Quarter: 2009Q2

REPORT INFORMATION
  Report Type: 
  Country: None (occurrence: None)
  Receive Date: 20090501
  Receipt Date: 20090424
  Transmission Date: 20091009
  Serious: Yes (Other)
  Sender: FDA-Public Use
  Company Number: PHEH2009US04107

PATIENT
  Sex: Female

DRUGS (1)
  1. RECLAST [Suspect]
     Dosage: UNK
     Dates: start: 20080901

REACTIONS (5)
  - JAW DISORDER [None]
  - MALOCCLUSION [None]
  - MUSCLE SPASMS [None]
  - MYALGIA [None]
  - PAIN IN JAW [None]
